FAERS Safety Report 7819605-0 (Version None)
Quarter: 2011Q4

REPORT INFORMATION
  Report Type: 
  Country: None (occurrence: None)
  Receive Date: 20111018
  Receipt Date: 20111018
  Transmission Date: 20120403
  Serious: Yes (Hospitalization)
  Sender: FDA-Public Use
  Company Number: None

PATIENT
  Age: 67 Year
  Sex: Male
  Weight: 90 kg

DRUGS (10)
  1. CHOLECALCIFEROL [Concomitant]
     Route: 048
  2. DESLORATADINE [Concomitant]
     Route: 048
  3. ATORVASTATIN [Concomitant]
     Route: 048
  4. BETAXOLOL [Concomitant]
     Route: 047
  5. LOVAZA [Concomitant]
     Route: 048
  6. DORZOLAMIDE [Concomitant]
     Route: 047
  7. BRIMONIDINE TARTRATE [Concomitant]
     Route: 047
  8. LATANOPROST [Concomitant]
     Route: 047
  9. ALLOPURINOL [Concomitant]
     Route: 048
  10. LISINOPRIL AND HYDROCHLOROTHIAZIDE [Suspect]
     Indication: HYPERTENSION
     Dosage: 12.5/10 MG
     Route: 048

REACTIONS (6)
  - SWOLLEN TONGUE [None]
  - DYSPNOEA [None]
  - HYPONATRAEMIA [None]
  - ANGIOEDEMA [None]
  - SWELLING FACE [None]
  - LIP SWELLING [None]
